FAERS Safety Report 7926735-1 (Version None)
Quarter: 2011Q4

REPORT INFORMATION
  Report Type: 
  Country: None (occurrence: None)
  Receive Date: 20111118
  Receipt Date: 20111111
  Transmission Date: 20120403
  Serious: Yes (Other)
  Sender: FDA-Public Use
  Company Number: JP-PFIZER INC-2011277912

PATIENT
  Age: 41 Year
  Sex: Male
  Weight: 52 kg

DRUGS (1)
  1. NONACOG ALFA [Suspect]
     Indication: FACTOR IX DEFICIENCY
     Dosage: 1000 IU, 2X/WEEK
     Dates: start: 20100628

REACTIONS (1)
  - DRUG INEFFECTIVE [None]
